FAERS Safety Report 7645450-5 (Version None)
Quarter: 2011Q3

REPORT INFORMATION
  Report Type: 
  Country: None (occurrence: None)
  Receive Date: 20110729
  Receipt Date: 20110725
  Transmission Date: 20111222
  Serious: Yes (Death, Hospitalization)
  Sender: FDA-Public Use
  Company Number: US-PFIZER INC-2011132098

PATIENT
  Sex: Male
  Weight: 74.4 kg

DRUGS (10)
  1. LIPITOR [Concomitant]
     Dosage: 10 MG, UNK
     Route: 048
  2. LIOTHYRONINE [Concomitant]
     Dosage: 25 UG OT
  3. SUTENT [Suspect]
     Dosage: 50 MG, 1X/DAY
     Route: 048
  4. LIOTHYRONINE [Concomitant]
     Dosage: 25 UG, UNK
     Route: 048
  5. FENTANYL [Concomitant]
     Dosage: 50 UG/HR TD
  6. LEVOTHROID [Concomitant]
     Dosage: 100 UG, UNK
     Route: 048
  7. CLONIDINE [Concomitant]
     Dosage: 0.1/24HR TD
  8. ONDANSETRON [Concomitant]
     Dosage: 4 MG, UNK
     Route: 048
  9. ENSURE PLUS [Concomitant]
     Dosage: UNK
  10. GAS-X [Concomitant]
     Dosage: 125 MG, UNK
     Route: 048

REACTIONS (3)
  - RASH [None]
  - DIARRHOEA [None]
  - DEATH [None]
